FAERS Safety Report 15643001 (Version 2)
Quarter: 2019Q3

REPORT INFORMATION
  Report Type: Spontaneous
  Country: ZA (occurrence: ZA)
  Receive Date: 20181121
  Receipt Date: 20190815
  Transmission Date: 20191004
  Serious: Yes (Other)
  Sender: FDA-Public Use
  Company Number: ZA-ROCHE-2216026

PATIENT
  Age: 40 Year
  Sex: Female
  Weight: 124 kg

DRUGS (1)
  1. ZELBORAF [Suspect]
     Active Substance: VEMURAFENIB
     Indication: MALIGNANT MELANOMA
     Route: 048
     Dates: start: 20181025

REACTIONS (7)
  - Arthralgia [Recovered/Resolved]
  - Pruritus [Recovered/Resolved]
  - Rash generalised [Unknown]
  - Burning sensation [Recovered/Resolved]
  - Rash [Not Recovered/Not Resolved]
  - Oropharyngeal pain [Recovered/Resolved]
  - Anaemia [Recovered/Resolved]

NARRATIVE: CASE EVENT DATE: 20181109
